FAERS Safety Report 24721285 (Version 1)
Quarter: 2024Q4

REPORT INFORMATION
  Report Type: Spontaneous
  Country: BR (occurrence: BR)
  Receive Date: 20241211
  Receipt Date: 20241211
  Transmission Date: 20250114
  Serious: Yes (Other)
  Sender: DAIICHI
  Company Number: BR-DSJP-DS-2024-103326-BR

PATIENT
  Age: 34 Year
  Sex: Male
  Weight: 116 kg

DRUGS (5)
  1. ENHERTU [Suspect]
     Active Substance: FAM-TRASTUZUMAB DERUXTECAN-NXKI
     Indication: HER2 positive gastric cancer
     Dosage: 6.4 MG/KG, ONCE EVERY 3 WK
     Route: 065
     Dates: start: 202311
  2. ENHERTU [Suspect]
     Active Substance: FAM-TRASTUZUMAB DERUXTECAN-NXKI
     Dosage: UNK UNK, ONCE EVERY 3 WK
     Route: 065
  3. ENHERTU [Suspect]
     Active Substance: FAM-TRASTUZUMAB DERUXTECAN-NXKI
     Dosage: 5.4 MG/KG
     Route: 065
  4. PANTOPRAZOLE [Concomitant]
     Active Substance: PANTOPRAZOLE
     Indication: Product used for unknown indication
     Dosage: 20 MG, QD
     Route: 065
  5. BROMOPRIDE [Concomitant]
     Active Substance: BROMOPRIDE
     Indication: Product used for unknown indication
     Dosage: 10 MG, TID
     Route: 065

REACTIONS (2)
  - Neutropenia [Recovered/Resolved]
  - Disease progression [Recovered/Resolved]

NARRATIVE: CASE EVENT DATE: 20240301
